FAERS Safety Report 7105313-0 (Version None)
Quarter: 2010Q4

REPORT INFORMATION
  Report Type: 
  Country: None (occurrence: None)
  Receive Date: 20101108
  Receipt Date: 20101029
  Transmission Date: 20110411
  Serious: Yes (Hospitalization, Other)
  Sender: FDA-Public Use
  Company Number: 2010AC000566

PATIENT
  Age: 67 Year
  Sex: Male
  Weight: 86.1834 kg

DRUGS (15)
  1. DIGOXIN [Suspect]
     Dosage: 0.250 MG; PO
     Route: 048
  2. PROTONIX [Concomitant]
  3. COREG [Concomitant]
  4. COUMADIN [Concomitant]
  5. LASIX [Concomitant]
  6. POTASSIUM CHLORIDE [Concomitant]
  7. ALDACTONE [Concomitant]
  8. LIPITOR [Concomitant]
  9. ASPIRIN [Concomitant]
  10. ALTACE [Concomitant]
  11. GLUCOTROL XL [Concomitant]
  12. TOPROL-XL [Concomitant]
  13. CARDIZEM [Concomitant]
  14. EPINEPHRINE [Concomitant]
  15. DOPAMINE [Concomitant]

REACTIONS (24)
  - ABDOMINAL DISTENSION [None]
  - ATRIAL FLUTTER [None]
  - BLOOD ALKALINE PHOSPHATASE INCREASED [None]
  - BLOOD CREATINE PHOSPHOKINASE INCREASED [None]
  - BRAIN NATRIURETIC PEPTIDE INCREASED [None]
  - CARDIAC FAILURE CHRONIC [None]
  - CARDIAC FAILURE CONGESTIVE [None]
  - CARDIAC MURMUR [None]
  - CARDIOACTIVE DRUG LEVEL BELOW THERAPEUTIC [None]
  - CARDIOMEGALY [None]
  - COUGH [None]
  - CREPITATIONS [None]
  - DYSPNOEA PAROXYSMAL NOCTURNAL [None]
  - ELECTROCARDIOGRAM T WAVE INVERSION [None]
  - GAIT DISTURBANCE [None]
  - HEMIANOPIA HOMONYMOUS [None]
  - HEPATIC CONGESTION [None]
  - HEPATIC ENZYME INCREASED [None]
  - HYPOPHAGIA [None]
  - HYPOTENSION [None]
  - JUGULAR VEIN DISTENSION [None]
  - MENTAL STATUS CHANGES [None]
  - ORTHOPNOEA [None]
  - RENAL FAILURE ACUTE [None]
